FAERS Safety Report 5719937-6 (Version None)
Quarter: 2008Q2

REPORT INFORMATION
  Report Type: 
  Country: None (occurrence: None)
  Receive Date: 20080424
  Receipt Date: 20080411
  Transmission Date: 20081010
  Serious: Yes (Hospitalization)
  Sender: FDA-Public Use
  Company Number: 2008009561

PATIENT

DRUGS (1)
  1. CETIRIZINE HCL [Suspect]
     Dosage: 50 MG ONCE, ORAL
     Route: 048
     Dates: start: 20080411, end: 20080411

REACTIONS (1)
  - INCORRECT DOSE ADMINISTERED [None]
